FAERS Safety Report 21333195 (Version 5)
Quarter: 2022Q4

REPORT INFORMATION
  Report Type: Spontaneous
  Country: US (occurrence: US)
  Receive Date: 20220914
  Receipt Date: 20221015
  Transmission Date: 20230112
  Serious: No
  Sender: FDA-Public Use
  Company Number: US-TORRENT-00012003

PATIENT
  Age: 29 Year
  Sex: Female
  Weight: 76 kg

DRUGS (1)
  1. DAPSONE [Suspect]
     Active Substance: DAPSONE
     Indication: Acne
     Dosage: ONCE IN THE MORNING
     Route: 065
     Dates: start: 20220824

REACTIONS (5)
  - Product quality issue [Unknown]
  - Skin exfoliation [Unknown]
  - Product physical consistency issue [Unknown]
  - Burning sensation [Unknown]
  - Erythema [Recovered/Resolved]

NARRATIVE: CASE EVENT DATE: 20220901
